FAERS Safety Report 15877812 (Version 1)
Quarter: 2019Q1

REPORT INFORMATION
  Report Type: Spontaneous
  Country: PL (occurrence: PL)
  Receive Date: 20190128
  Receipt Date: 20190128
  Transmission Date: 20190417
  Serious: Yes (Other)
  Sender: FDA-Public Use
  Company Number: PL-NALPROPION PHARMACEUTICALS INC.-2019-006440

PATIENT

DRUGS (1)
  1. MYSIMBA (NALTREXONE HCL/BUPROPION HCL) PROLONGED-RELEASE TABLETS [Suspect]
     Active Substance: BUPROPION HYDROCHLORIDE\NALTREXONE HYDROCHLORIDE
     Indication: OBESITY
     Dosage: 1 TABLET IN THE MORNING
     Route: 048
     Dates: start: 20190101, end: 20190104

REACTIONS (15)
  - Vision blurred [Unknown]
  - Depersonalisation/derealisation disorder [Unknown]
  - Balance disorder [Unknown]
  - Suicidal ideation [Unknown]
  - Depressed mood [Unknown]
  - Derealisation [Unknown]
  - Nausea [Unknown]
  - Vomiting [Unknown]
  - Nightmare [Unknown]
  - Illusion [Unknown]
  - Abdominal pain [Unknown]
  - Hallucination, visual [Unknown]
  - Headache [Unknown]
  - Anxiety [Unknown]
  - Feeling abnormal [Unknown]

NARRATIVE: CASE EVENT DATE: 20190101
